FAERS Safety Report 5230197-5 (Version None)
Quarter: 2007Q1

REPORT INFORMATION
  Report Type: 
  Country: None (occurrence: None)
  Receive Date: 20070206
  Receipt Date: 20060928
  Transmission Date: 20070707
  Serious: Yes (Other)
  Sender: FDA-Public Use
  Company Number: US-GLAXOSMITHKLINE-A0621810A

PATIENT
  Sex: Female

DRUGS (8)
  1. PAXIL [Suspect]
     Indication: DEPRESSION
     Dosage: 37.5MG PER DAY
     Route: 048
     Dates: start: 20010101, end: 20060908
  2. XANAX [Concomitant]
  3. LOPRESSOR [Concomitant]
  4. INDURA [Concomitant]
  5. COZAAR [Concomitant]
  6. NORVASC [Concomitant]
  7. PLAVIX [Concomitant]
  8. INSULIN [Concomitant]

REACTIONS (6)
  - CHILLS [None]
  - CRYING [None]
  - HALLUCINATION [None]
  - HEADACHE [None]
  - INSOMNIA [None]
  - NAUSEA [None]
